FAERS Safety Report 10912995 (Version 2)
Quarter: 2015Q1

REPORT INFORMATION
  Report Type: Report from Study
  Country: DE (occurrence: DE)
  Receive Date: 20150313
  Receipt Date: 20150324
  Transmission Date: 20150721
  Serious: Yes (Hospitalization, Other)
  Sender: FDA-Public Use
  Company Number: DE-ABBVIE-15P-062-1356861-00

PATIENT
  Age: 69 Year
  Sex: Male
  Weight: 77 kg

DRUGS (18)
  1. DUODOPA [Suspect]
     Active Substance: CARBIDOPA\LEVODOPA
     Indication: PARKINSON^S DISEASE
     Dosage: MD: 10.5ML;CRD (6:00 TO 13:00): 3.5 ML/H; CRD (13:00 YO 22:00): 3.4 ML/H
     Route: 050
  2. SIMVASTATIN. [Concomitant]
     Active Substance: SIMVASTATIN
     Indication: PRODUCT USED FOR UNKNOWN INDICATION
     Dosage: 0-0-1-0
  3. QUETIAPIN [Concomitant]
     Active Substance: QUETIAPINE
     Indication: PRODUCT USED FOR UNKNOWN INDICATION
     Dosage: 0-0-0-1
  4. FOLIC ACID. [Concomitant]
     Active Substance: FOLIC ACID
     Indication: PRODUCT USED FOR UNKNOWN INDICATION
     Dosage: 1-0-0-0
  5. NOVORAPID [Concomitant]
     Active Substance: INSULIN ASPART
     Indication: PRODUCT USED FOR UNKNOWN INDICATION
     Dosage: PRANDIAL BOLUS WITH BOLUS CALCULATOR
  6. RIVOTRIL [Concomitant]
     Active Substance: CLONAZEPAM
     Indication: PRODUCT USED FOR UNKNOWN INDICATION
  7. BENSERAZIDE [Concomitant]
     Active Substance: BENSERAZIDE
     Indication: PRODUCT USED FOR UNKNOWN INDICATION
     Dosage: 0-0-0-1
  8. PYRIDOXIN [Concomitant]
     Active Substance: PYRIDOXINE
     Indication: PRODUCT USED FOR UNKNOWN INDICATION
     Dosage: 1-0-0-0
  9. RAMIPRIL. [Concomitant]
     Active Substance: RAMIPRIL
     Indication: PRODUCT USED FOR UNKNOWN INDICATION
     Dosage: 1-0-0-0
  10. COBALAMINE (VITAMIN B12) [Concomitant]
     Indication: PRODUCT USED FOR UNKNOWN INDICATION
  11. CLOPIDOGREL [Concomitant]
     Active Substance: CLOPIDOGREL BISULFATE
     Indication: PRODUCT USED FOR UNKNOWN INDICATION
     Dosage: THERAPY PAUSE
  12. CLOPIDOGREL [Concomitant]
     Active Substance: CLOPIDOGREL BISULFATE
     Dates: start: 201502
  13. TAMSULOSIN [Concomitant]
     Active Substance: TAMSULOSIN
     Indication: PRODUCT USED FOR UNKNOWN INDICATION
     Dosage: 1-0-0-0
  14. KREON [Concomitant]
     Active Substance: PANCRELIPASE
     Indication: PRODUCT USED FOR UNKNOWN INDICATION
     Dosage: 1-1-1-0
  15. CLEXANE [Concomitant]
     Active Substance: ENOXAPARIN SODIUM
     Indication: PRODUCT USED FOR UNKNOWN INDICATION
     Route: 058
  16. PANTOPRAZOLE [Concomitant]
     Active Substance: PANTOPRAZOLE SODIUM
     Indication: PRODUCT USED FOR UNKNOWN INDICATION
     Dosage: 1-0-0-0
  17. RIVASTIGMINE (EXELON PLASTER) [Concomitant]
     Indication: PRODUCT USED FOR UNKNOWN INDICATION
     Dosage: DAILY CHANGE OF THE PLASTER
  18. LEVEMIR [Concomitant]
     Active Substance: INSULIN DETEMIR
     Indication: PRODUCT USED FOR UNKNOWN INDICATION
     Dosage: 6 I.E.-0-0-10 I.E.
     Route: 058

REACTIONS (21)
  - Ischaemic stroke [Recovered/Resolved with Sequelae]
  - Asthenia [Recovering/Resolving]
  - Hemiparesis [Recovering/Resolving]
  - Hemiparesis [Unknown]
  - Disorientation [Unknown]
  - Ventricular extrasystoles [Unknown]
  - General physical health deterioration [Recovering/Resolving]
  - Carotid artery stenosis [Unknown]
  - Muscular weakness [Unknown]
  - Arteriosclerosis [Unknown]
  - Angiopathy [Unknown]
  - Escherichia urinary tract infection [Recovering/Resolving]
  - Speech disorder [Unknown]
  - Mitral valve incompetence [Unknown]
  - Aphasia [Unknown]
  - Cerebral haemorrhage [Recovered/Resolved with Sequelae]
  - Urinary tract infection pseudomonal [Recovering/Resolving]
  - Apathy [Recovering/Resolving]
  - Mitral valve sclerosis [Unknown]
  - Aphasia [Recovering/Resolving]
  - Supraventricular extrasystoles [Unknown]

NARRATIVE: CASE EVENT DATE: 20150130
